FAERS Safety Report 20562701 (Version 1)
Quarter: 2022Q1

REPORT INFORMATION
  Report Type: Other
  Country: US (occurrence: None)
  Receive Date: 20220307
  Receipt Date: 20220307
  Transmission Date: 20220423
  Serious: Yes (Death, Hospitalization)
  Sender: FDA-Public Use
  Company Number: US-ROCHE-2676382

PATIENT
  Age: 20 Year
  Sex: Female

DRUGS (2)
  1. OCREVUS [Suspect]
     Active Substance: OCRELIZUMAB
     Indication: Relapsing-remitting multiple sclerosis
     Dosage: SECOND DOSE ON 08/SEP/2020:?THAN 600 MG EVERY 6 MONTH
     Route: 042
     Dates: start: 20200908, end: 20220131
  2. OCREVUS [Suspect]
     Active Substance: OCRELIZUMAB
     Route: 042
     Dates: start: 202009, end: 202202

REACTIONS (4)
  - Urticaria [Unknown]
  - COVID-19 pneumonia [Fatal]
  - Sepsis [Fatal]
  - Urticaria [Unknown]

NARRATIVE: CASE EVENT DATE: 20220201
